FAERS Safety Report 11939371 (Version 4)
Quarter: 2016Q2

REPORT INFORMATION
  Report Type: Spontaneous
  Country: US (occurrence: US)
  Receive Date: 20160122
  Receipt Date: 20160503
  Transmission Date: 20160815
  Serious: Yes (Other)
  Sender: FDA-Public Use
  Company Number: US-LEO PHARMA-239715

PATIENT
  Sex: Female

DRUGS (1)
  1. PICATO [Suspect]
     Active Substance: INGENOL MEBUTATE
     Indication: ACTINIC KERATOSIS
     Dosage: APPLIED ONCE DAILY TO ENTIRE FOREHEAD
     Dates: start: 20160116, end: 20160118

REACTIONS (9)
  - Application site discolouration [Recovered/Resolved]
  - Application site vesicles [Recovered/Resolved]
  - Application site dryness [Recovered/Resolved]
  - Application site scab [Recovered/Resolved]
  - Application site erythema [Recovered/Resolved]
  - Eye swelling [Recovered/Resolved]
  - Application site pruritus [Recovered/Resolved]
  - Application site exfoliation [Recovered/Resolved]
  - Drug administration error [Unknown]
